FAERS Safety Report 10394737 (Version 2)
Quarter: 2014Q3

REPORT INFORMATION
  Report Type: Spontaneous
  Country: FR (occurrence: FR)
  Receive Date: 20140820
  Receipt Date: 20140827
  Transmission Date: 20150326
  Serious: Yes (Hospitalization)
  Sender: FDA-Public Use
  Company Number: FR-PFIZER INC-2014230176

PATIENT
  Age: 49 Year
  Sex: Female

DRUGS (9)
  1. RISPERDAL [Concomitant]
     Active Substance: RISPERIDONE
  2. URBANYL [Concomitant]
     Active Substance: CLOBAZAM
  3. DILANTIN [Suspect]
     Active Substance: PHENYTOIN
     Indication: EPILEPSY
     Dosage: LOADING DOSE 1 G, ONCE A HOUR
     Route: 042
     Dates: start: 20140721, end: 20140721
  4. RIVOTRIL [Concomitant]
     Active Substance: CLONAZEPAM
  5. HYPNOVEL [Concomitant]
     Active Substance: MIDAZOLAM\MIDAZOLAM HYDROCHLORIDE
  6. KEPPRA [Concomitant]
     Active Substance: LEVETIRACETAM
  7. ETOMIDATE LIPURO [Concomitant]
     Active Substance: ETOMIDATE
  8. SUFENTA [Concomitant]
     Active Substance: SUFENTANIL CITRATE
  9. ESMERON [Concomitant]
     Active Substance: ROCURONIUM BROMIDE

REACTIONS (4)
  - Infusion site infection [Recovering/Resolving]
  - Staphylococcal sepsis [Recovering/Resolving]
  - Skin necrosis [Recovering/Resolving]
  - Infusion site rash [Recovering/Resolving]

NARRATIVE: CASE EVENT DATE: 20140723
